FAERS Safety Report 9191811 (Version 1)
Quarter: 2013Q1

REPORT INFORMATION
  Report Type: Spontaneous
  Country: US (occurrence: US)
  Receive Date: 20130327
  Receipt Date: 20130327
  Transmission Date: 20140127
  Serious: Yes (Hospitalization)
  Sender: FDA-Public Use
  Company Number: US-BIOGENIDEC-2013BI026912

PATIENT
  Age: 47 Year
  Sex: Female

DRUGS (2)
  1. AVONEX [Suspect]
     Indication: MULTIPLE SCLEROSIS
     Route: 030
     Dates: start: 200402, end: 2012
  2. AVONEX [Suspect]
     Indication: MULTIPLE SCLEROSIS
     Route: 030
     Dates: start: 2012

REACTIONS (6)
  - Pelvic fracture [Unknown]
  - Fall [Recovered/Resolved]
  - Humerus fracture [Unknown]
  - Gait disturbance [Recovered/Resolved]
  - Muscle spasticity [Not Recovered/Not Resolved]
  - Influenza like illness [Recovered/Resolved]
